FAERS Safety Report 19006075 (Version 1)
Quarter: 2021Q1

REPORT INFORMATION
  Report Type: Spontaneous
  Country: CN (occurrence: CN)
  Receive Date: 20210314
  Receipt Date: 20210314
  Transmission Date: 20210420
  Serious: Yes (Other)
  Sender: FDA-Public Use
  Company Number: CN-BAXTER-2021BAX004772

PATIENT
  Age: 64 Year
  Sex: Female
  Weight: 65 kg

DRUGS (5)
  1. 0.9% SODIUM CHLORIDE INJECTION [Suspect]
     Active Substance: SODIUM CHLORIDE
     Indication: MEDICATION DILUTION
     Dosage: FIRST CYCLE OF CHEMOTHERAPY; ENDOXAN 1000 MG + NS 50 ML
     Route: 042
     Dates: start: 20210104, end: 20210104
  2. ENDOXAN [Suspect]
     Active Substance: CYCLOPHOSPHAMIDE
     Indication: BREAST CANCER FEMALE
     Dosage: FIRST CYCLE OF CHEMOTHERAPY; ENDOXAN 1000 MG + NS 50 ML
     Route: 042
     Dates: start: 20210104, end: 20210104
  3. 0.9% SODIUM CHLORIDE INJECTION [Suspect]
     Active Substance: SODIUM CHLORIDE
     Dosage: FIRST CYCLE OF CHEMOTHERAPY; TAXOTERE 130 MG + NS 250 ML
     Route: 041
     Dates: start: 20210104, end: 20210104
  4. TAXOTERE [Suspect]
     Active Substance: DOCETAXEL
     Indication: BREAST CANCER FEMALE
     Dosage: FIRST CYCLE OF CHEMOTHERAPY; TAXOTERE 130 MG + NS 250 ML
     Route: 041
     Dates: start: 20210104, end: 20210104
  5. JINYOULI [Concomitant]
     Active Substance: ANF-RHO
     Indication: PROPHYLAXIS
     Route: 058
     Dates: start: 20210105

REACTIONS (2)
  - White blood cell count decreased [Recovered/Resolved]
  - Agranulocytosis [Recovered/Resolved]

NARRATIVE: CASE EVENT DATE: 20210109
